FAERS Safety Report 8204957-2 (Version None)
Quarter: 2012Q1

REPORT INFORMATION
  Report Type: 
  Country: None (occurrence: None)
  Receive Date: 20120313
  Receipt Date: 20120302
  Transmission Date: 20120608
  Serious: Yes (Hospitalization, Other)
  Sender: FDA-Public Use
  Company Number: JP-GENZYME-THYM-1003101

PATIENT
  Sex: Male
  Weight: 9 kg

DRUGS (72)
  1. AMLODIPINE BESYLATE [Concomitant]
     Indication: BRONCHOPULMONARY ASPERGILLOSIS
     Dosage: UNK
     Route: 065
     Dates: start: 20100222, end: 20100608
  2. SODIUM CROMOGLICATE [Concomitant]
     Indication: PRODUCT USED FOR UNKNOWN INDICATION
     Dosage: UNK
     Route: 065
     Dates: start: 20100615, end: 20100706
  3. NORMAL HUMAN IMMUNOGLOBULIN [Concomitant]
     Indication: PRODUCT USED FOR UNKNOWN INDICATION
     Dosage: UNK
     Route: 065
     Dates: start: 20100205, end: 20100205
  4. ANTITHROMBIN III HUMAN [Concomitant]
     Dosage: UNK
     Route: 065
     Dates: start: 20100216, end: 20100216
  5. NICARDIPINE HYDROCHLORIDE [Concomitant]
     Indication: PRODUCT USED FOR UNKNOWN INDICATION
     Dosage: UNK
     Route: 065
     Dates: start: 20100214, end: 20100307
  6. CEFOZOPRAN HYDROCHLORIDE [Concomitant]
     Dosage: UNK
     Route: 065
     Dates: start: 20100406, end: 20100406
  7. SOYBEAN OIL [Concomitant]
     Dosage: UNK
     Route: 065
     Dates: start: 20100418, end: 20100514
  8. NAFAMOSTAT MESILATE [Concomitant]
     Indication: PRODUCT USED FOR UNKNOWN INDICATION
     Dosage: UNK
     Route: 065
     Dates: start: 20100325, end: 20100328
  9. CLINDAMYCIN PHOSPHATE [Concomitant]
     Indication: PRODUCT USED FOR UNKNOWN INDICATION
     Dosage: UNK
     Route: 065
     Dates: start: 20100514, end: 20100515
  10. OSELTAMIVIR PHOSPHATE [Concomitant]
     Indication: ANTIVIRAL PROPHYLAXIS
     Dosage: UNK
     Dates: start: 20100217, end: 20100226
  11. CLARITHROMYCIN [Concomitant]
     Indication: PRODUCT USED FOR UNKNOWN INDICATION
     Dosage: UNK
     Route: 065
     Dates: start: 20100709
  12. PIPERACILLIN SODIUM [Concomitant]
     Dosage: UNK
     Route: 065
     Dates: start: 20100319, end: 20100322
  13. NORMAL HUMAN IMMUNOGLOBULIN [Concomitant]
     Dosage: UNK
     Route: 065
     Dates: start: 20100729, end: 20100729
  14. METHYLDOPA [Concomitant]
     Indication: PRODUCT USED FOR UNKNOWN INDICATION
     Dosage: UNK
     Route: 065
     Dates: start: 20100418
  15. THYMOGLOBULIN [Suspect]
     Indication: BONE MARROW CONDITIONING REGIMEN
     Dosage: 22.5 MG, QD
     Route: 042
     Dates: start: 20100130, end: 20100202
  16. VORICONAZOLE [Concomitant]
     Indication: BRONCHOPULMONARY ASPERGILLOSIS
     Dosage: UNK
     Route: 065
     Dates: start: 20091028
  17. URSODESOXYCHOLIC ACID [Concomitant]
     Indication: PRODUCT USED FOR UNKNOWN INDICATION
     Route: 065
  18. FENOTEROL HYDROBROMIDE [Concomitant]
     Indication: PRODUCT USED FOR UNKNOWN INDICATION
     Dosage: UNK
     Route: 065
     Dates: start: 20100119, end: 20100303
  19. MINOCYCLINE HYDROCHLORIDE [Concomitant]
     Indication: PRODUCT USED FOR UNKNOWN INDICATION
     Dosage: UNK
     Dates: start: 20100729
  20. METHYLPREDNISOLONE [Concomitant]
     Dosage: UNK
     Route: 065
     Dates: start: 20100407, end: 20100407
  21. NORMAL HUMAN IMMUNOGLOBULIN [Concomitant]
  22. MICAFUNGIN SODIUM [Concomitant]
     Indication: PRODUCT USED FOR UNKNOWN INDICATION
     Dosage: UNK
     Route: 065
     Dates: start: 20100208, end: 20100323
  23. DANAPAROID SODIUM [Concomitant]
     Indication: PRODUCT USED FOR UNKNOWN INDICATION
     Dosage: UNK
     Route: 065
     Dates: start: 20100325
  24. HAPTOGLOBINS [Concomitant]
     Indication: PRODUCT USED FOR UNKNOWN INDICATION
     Dosage: UNK
     Route: 065
     Dates: start: 20100326, end: 20100329
  25. THROMBOMODULIN ALFA (GENETICAL RECOMBINATION) [Concomitant]
     Dosage: UNK
     Route: 065
     Dates: start: 20100422, end: 20100523
  26. AMPHOTERICIN B [Concomitant]
     Indication: BRONCHOPULMONARY ASPERGILLOSIS
     Dosage: UNK
     Route: 065
     Dates: start: 20100119, end: 20100101
  27. AMPHOTERICIN B [Concomitant]
     Dosage: UNK
     Route: 065
     Dates: start: 20100321, end: 20100321
  28. CARBOCISTEINE [Concomitant]
     Indication: PRODUCT USED FOR UNKNOWN INDICATION
     Dosage: UNK
     Route: 065
     Dates: start: 20100717
  29. NORMAL HUMAN IMMUNOGLOBULIN [Concomitant]
     Dosage: UNK
     Route: 065
     Dates: start: 20100219, end: 20100219
  30. ACYCLOVIR [Concomitant]
     Indication: PRODUCT USED FOR UNKNOWN INDICATION
     Dosage: UNK
     Route: 065
     Dates: start: 20100201, end: 20100311
  31. ANTITHROMBIN III HUMAN [Concomitant]
     Indication: PRODUCT USED FOR UNKNOWN INDICATION
     Dosage: UNK
     Route: 065
     Dates: start: 20100211, end: 20100211
  32. ANTITHROMBIN III HUMAN [Concomitant]
     Dosage: UNK
     Route: 065
     Dates: start: 20100325, end: 20100325
  33. MELPHALAN HYDROCHLORIDE [Concomitant]
     Indication: BONE MARROW CONDITIONING REGIMEN
     Dosage: 40 MG/KG, QD
     Route: 065
  34. METHOTREXATE [Concomitant]
     Indication: PROPHYLAXIS AGAINST GRAFT VERSUS HOST DISEASE
     Dosage: UNK
     Route: 065
     Dates: start: 20100205, end: 20100205
  35. MAGNESIUM OXIDE [Concomitant]
     Indication: PRODUCT USED FOR UNKNOWN INDICATION
     Dosage: UNK
     Route: 065
     Dates: start: 20100628, end: 20100706
  36. NORMAL HUMAN IMMUNOGLOBULIN [Concomitant]
     Dosage: UNK
     Route: 065
     Dates: start: 20100226, end: 20100226
  37. NORMAL HUMAN IMMUNOGLOBULIN [Concomitant]
     Dosage: UNK
     Route: 065
     Dates: start: 20100403, end: 20100403
  38. NORMAL HUMAN IMMUNOGLOBULIN [Concomitant]
     Dosage: UNK
     Route: 065
     Dates: start: 20100515, end: 20100515
  39. CARBENIN [Concomitant]
     Indication: PRODUCT USED FOR UNKNOWN INDICATION
     Dosage: UNK
     Route: 065
     Dates: start: 20100208, end: 20100223
  40. MICAFUNGIN SODIUM [Concomitant]
     Dosage: UNK
     Route: 065
     Dates: start: 20100729
  41. THROMBOMODULIN ALFA (GENETICAL RECOMBINATION) [Concomitant]
     Indication: PRODUCT USED FOR UNKNOWN INDICATION
     Dosage: UNK
     Route: 065
     Dates: start: 20100329, end: 20100402
  42. PREDNISOLONE [Concomitant]
     Indication: PRODUCT USED FOR UNKNOWN INDICATION
     Dosage: UNK
     Route: 065
     Dates: start: 20100513, end: 20100514
  43. FLUDARA [Suspect]
     Indication: BONE MARROW CONDITIONING REGIMEN
     Dosage: 25 MG/KG, QD
     Route: 042
  44. TACROLIMUS [Concomitant]
     Indication: PROPHYLAXIS AGAINST GRAFT VERSUS HOST DISEASE
     Dosage: UNK
     Route: 065
     Dates: start: 20100203, end: 20100324
  45. MINOCYCLINE HYDROCHLORIDE [Concomitant]
     Dosage: UNK
     Dates: start: 20100731
  46. PIPERACILLIN SODIUM [Concomitant]
     Indication: PRODUCT USED FOR UNKNOWN INDICATION
     Dosage: UNK
     Route: 065
     Dates: start: 20100120, end: 20100208
  47. NORMAL HUMAN IMMUNOGLOBULIN [Concomitant]
     Dosage: UNK
     Route: 065
     Dates: start: 20100212, end: 20100212
  48. CARBENIN [Concomitant]
     Dosage: UNK
     Dates: start: 20100524, end: 20100607
  49. FILGRASTIM [Concomitant]
     Indication: PRODUCT USED FOR UNKNOWN INDICATION
     Dosage: UNK
     Route: 065
     Dates: start: 20100209, end: 20100301
  50. ANTITHROMBIN III HUMAN [Concomitant]
     Dosage: UNK
     Route: 065
     Dates: start: 20100213, end: 20100213
  51. ANTITHROMBIN III HUMAN [Concomitant]
     Dosage: UNK
     Route: 065
     Dates: start: 20100519, end: 20100519
  52. CEFOZOPRAN HYDROCHLORIDE [Concomitant]
     Dosage: UNK
     Route: 065
     Dates: start: 20100729
  53. SOYBEAN OIL [Concomitant]
     Indication: PRODUCT USED FOR UNKNOWN INDICATION
     Dosage: UNK
     Route: 065
     Dates: start: 20100318, end: 20100325
  54. METHYLPREDNISOLONE [Concomitant]
     Indication: PRODUCT USED FOR UNKNOWN INDICATION
     Dosage: UNK
     Route: 065
     Dates: start: 20100129, end: 20100204
  55. PIPERACILLIN SODIUM [Concomitant]
     Dosage: UNK
     Route: 065
     Dates: start: 20100210, end: 20100216
  56. PIPERACILLIN SODIUM [Concomitant]
     Dosage: UNK
     Route: 065
     Dates: start: 20100521, end: 20100524
  57. NORMAL HUMAN IMMUNOGLOBULIN [Concomitant]
     Dosage: UNK
     Route: 065
     Dates: start: 20100422, end: 20100422
  58. NICARDIPINE HYDROCHLORIDE [Concomitant]
     Dosage: UNK
     Route: 065
     Dates: start: 20100327, end: 20100518
  59. CEFOZOPRAN HYDROCHLORIDE [Concomitant]
     Indication: PRODUCT USED FOR UNKNOWN INDICATION
     Dosage: UNK
     Route: 065
     Dates: start: 20100216, end: 20100301
  60. CEFOZOPRAN HYDROCHLORIDE [Concomitant]
     Dosage: UNK
     Route: 065
     Dates: start: 20100322, end: 20100323
  61. VANCOMYCIN HYDROCHLORIDE [Concomitant]
     Indication: PRODUCT USED FOR UNKNOWN INDICATION
     Dosage: UNK
     Route: 065
     Dates: start: 20100515, end: 20100526
  62. METHOTREXATE [Concomitant]
     Dosage: UNK
     Route: 065
     Dates: start: 20100207, end: 20100207
  63. METHOTREXATE [Concomitant]
     Dosage: UNK
     Route: 065
     Dates: start: 20100210, end: 20100210
  64. SULFAMETHOPRIM [Concomitant]
     Indication: ANTIFUNGAL PROPHYLAXIS
     Dosage: UNK
     Route: 065
     Dates: start: 20091001
  65. CLOSTRIDIUM BUTYRICUM [Concomitant]
     Indication: PRODUCT USED FOR UNKNOWN INDICATION
     Dosage: UNK
     Route: 065
     Dates: start: 20100303, end: 20100627
  66. PRANLUKAST [Concomitant]
     Indication: PRODUCT USED FOR UNKNOWN INDICATION
     Dosage: UNK
     Route: 065
     Dates: start: 20100717
  67. CEFDITOREN PIVOXIL [Concomitant]
     Indication: PRODUCT USED FOR UNKNOWN INDICATION
     Dosage: UNK
     Route: 065
     Dates: start: 20100720, end: 20100725
  68. METHYLPREDNISOLONE [Concomitant]
     Dosage: UNK
     Route: 065
     Dates: start: 20100323, end: 20100402
  69. NORMAL HUMAN IMMUNOGLOBULIN [Concomitant]
     Dosage: UNK
     Route: 065
     Dates: start: 20100324, end: 20100324
  70. CARBENIN [Concomitant]
     Dosage: UNK
     Route: 065
     Dates: start: 20100729
  71. ANTITHROMBIN III HUMAN [Concomitant]
     Dosage: UNK
     Route: 065
     Dates: start: 20100221, end: 20100221
  72. CYCLOSPORINE [Concomitant]
     Indication: PRODUCT USED FOR UNKNOWN INDICATION
     Dosage: UNK
     Route: 065
     Dates: start: 20100324, end: 20100418

REACTIONS (3)
  - THROMBOTIC MICROANGIOPATHY [None]
  - STAPHYLOCOCCAL SEPSIS [None]
  - BRONCHOPULMONARY ASPERGILLOSIS [None]
